FAERS Safety Report 5456318-7 (Version None)
Quarter: 2007Q3

REPORT INFORMATION
  Report Type: 
  Country: None (occurrence: None)
  Receive Date: 20070918
  Receipt Date: 20070913
  Transmission Date: 20080115
  Serious: Yes (Hospitalization)
  Sender: FDA-Public Use
  Company Number: DE-MERCK-0505DEU00004

PATIENT
  Age: 57 Year
  Sex: Female

DRUGS (2)
  1. MAXALT [Suspect]
     Indication: MIGRAINE
     Route: 048
     Dates: start: 20041226, end: 20041227
  2. MAXALT [Suspect]
     Route: 048
     Dates: start: 20050501, end: 20050501

REACTIONS (6)
  - CHILLS [None]
  - HAEMATOMA [None]
  - HAEMATURIA [None]
  - PETECHIAE [None]
  - RAYNAUD'S PHENOMENON [None]
  - THROMBOCYTOPENIA [None]
